FAERS Safety Report 5698775-7 (Version None)
Quarter: 2008Q2

REPORT INFORMATION
  Report Type: 
  Country: None (occurrence: None)
  Receive Date: 20080404
  Receipt Date: 20080326
  Transmission Date: 20081010
  Serious: Yes (Hospitalization)
  Sender: FDA-Public Use
  Company Number: 2008-02073

PATIENT
  Age: 52 Year
  Sex: Male

DRUGS (2)
  1. FIORINAL [Suspect]
     Indication: DRUG USE FOR UNKNOWN INDICATION
     Dates: end: 20050101
  2. COUMADIN [Suspect]
     Indication: DEEP VEIN THROMBOSIS
     Dosage: 5 MG, DAILY X 18 MONTHS, ORAL
     Route: 048
     Dates: start: 20040101, end: 20050101

REACTIONS (2)
  - BROWN-SEQUARD SYNDROME [None]
  - EXTRADURAL HAEMATOMA [None]
